FAERS Safety Report 18972515 (Version 1)
Quarter: 2021Q1

REPORT INFORMATION
  Report Type: Spontaneous
  Country: FR (occurrence: FR)
  Receive Date: 20210305
  Receipt Date: 20210305
  Transmission Date: 20210420
  Serious: No
  Sender: FDA-Public Use
  Company Number: FR-ALKEM LABORATORIES LIMITED-FR-ALKEM-2021-00563

PATIENT
  Age: 35 Year

DRUGS (5)
  1. METHOTREXATE. [Suspect]
     Active Substance: METHOTREXATE
     Indication: ROSAI-DORFMAN SYNDROME
     Dosage: 25 MILLIGRAM, ONCE WEEKLY
     Route: 065
  2. INFLIXIMAB [Suspect]
     Active Substance: INFLIXIMAB
     Indication: ROSAI-DORFMAN SYNDROME
     Dosage: 5 MILLIGRAM/KILOGRAM/MONTH
     Route: 065
  3. CLADRIBINE. [Suspect]
     Active Substance: CLADRIBINE
     Indication: ROSAI-DORFMAN SYNDROME
     Dosage: UNK, 3 CYCLES PER MONTH
     Route: 058
  4. COLCHICINE. [Suspect]
     Active Substance: COLCHICINE
     Indication: ROSAI-DORFMAN SYNDROME
     Dosage: UNK
     Route: 065
  5. TOCILUZIMAB [Suspect]
     Active Substance: TOCILIZUMAB
     Indication: ROSAI-DORFMAN SYNDROME
     Dosage: 8 MILLIGRAM/KILOGRAM/MONTH
     Route: 042

REACTIONS (1)
  - Treatment failure [Unknown]
